FAERS Safety Report 8935141 (Version 1)
Quarter: 2012Q4

REPORT INFORMATION
  Report Type: 
  Country: GB (occurrence: GB)
  Receive Date: 20121129
  Receipt Date: 20121129
  Transmission Date: 20130627
  Serious: Yes (Other)
  Sender: FDA-Public Use
  Company Number: PHFR2012GB006047

PATIENT
  Age: 63 Year
  Sex: Male
  Weight: 73.47 kg

DRUGS (5)
  1. RASILEZ [Suspect]
     Dates: start: 20110110, end: 20121020
  2. WARFARIN [Concomitant]
  3. OXYCONTIN [Concomitant]
  4. GABAPENTIN [Concomitant]
  5. TRAMADOL [Concomitant]

REACTIONS (1)
  - Arthralgia [Recovered/Resolved]
